FAERS Safety Report 23254493 (Version 5)
Quarter: 2024Q3

REPORT INFORMATION
  Report Type: Spontaneous
  Country: US (occurrence: US)
  Receive Date: 20231202
  Receipt Date: 20240801
  Transmission Date: 20241016
  Serious: No
  Sender: PURDUE
  Company Number: US-PURDUE-USA-2023-0305269

PATIENT
  Sex: Male
  Weight: 145.15 kg

DRUGS (4)
  1. HYDROCODONE BITARTRATE [Suspect]
     Active Substance: HYDROCODONE BITARTRATE
     Indication: Analgesic therapy
     Dosage: UNKNOWN
     Route: 065
     Dates: end: 2020
  2. HYDROCODONE BITARTRATE [Suspect]
     Active Substance: HYDROCODONE BITARTRATE
     Dosage: HALF HIS PREVIOUS HYDROCODONE DOSAGE
     Route: 065
  3. HYSINGLA ER [Suspect]
     Active Substance: HYDROCODONE BITARTRATE
     Indication: Analgesic therapy
     Dosage: 40 MILLIGRAM
     Route: 048
  4. HYSINGLA ER [Suspect]
     Active Substance: HYDROCODONE BITARTRATE
     Indication: Pain management
     Dosage: UNK, DAILY (ONE TABLET PER DAY)
     Route: 048

REACTIONS (2)
  - Intentional product use issue [Unknown]
  - Inadequate analgesia [Unknown]
